FAERS Safety Report 7114091-0 (Version None)
Quarter: 2010Q4

REPORT INFORMATION
  Report Type: 
  Country: None (occurrence: None)
  Receive Date: 20101119
  Receipt Date: 20101115
  Transmission Date: 20110411
  Serious: Yes (Other)
  Sender: FDA-Public Use
  Company Number: CA-BAYER-201036889NA

PATIENT
  Age: 78 Year
  Sex: Female
  Weight: 59 kg

DRUGS (5)
  1. AVELOX [Suspect]
     Indication: PNEUMONIA
     Route: 042
     Dates: start: 20100626, end: 20100627
  2. ACETAMINOPHEN [Concomitant]
  3. CLINDAMYCIN [Concomitant]
  4. DIMENHYDRINATE [Concomitant]
  5. TEMAZEPAM [Concomitant]

REACTIONS (3)
  - DIZZINESS [None]
  - EYE PAIN [None]
  - TINNITUS [None]
